FAERS Safety Report 6063251-9 (Version None)
Quarter: 2009Q1

REPORT INFORMATION
  Report Type: 
  Country: None (occurrence: None)
  Receive Date: 20090203
  Receipt Date: 20090123
  Transmission Date: 20090719
  Serious: Yes (Death, Hospitalization)
  Sender: FDA-Public Use
  Company Number: IN-ROCHE-608994

PATIENT
  Sex: Male
  Weight: 87 kg

DRUGS (5)
  1. METHOXY POLYETHYLENE GLYCOL-EPOETIN BETA [Suspect]
     Dosage: DOSAGE REPORTED AS PFS
     Route: 042
     Dates: start: 20080930
  2. IRON SULPHATE [Concomitant]
  3. CALCIUM CARBONATE [Concomitant]
  4. VITAMINE D [Concomitant]
     Dosage: DRUG NAME REPORTED AS 1.25 DIHYDROXY VITAMIN D
  5. PANTOPRAZOLE [Concomitant]

REACTIONS (2)
  - DEATH [None]
  - SEPSIS [None]
